FAERS Safety Report 8214736-8 (Version None)
Quarter: 2012Q1

REPORT INFORMATION
  Report Type: 
  Country: None (occurrence: None)
  Receive Date: 20120316
  Receipt Date: 20120309
  Transmission Date: 20120608
  Serious: Yes (Other)
  Sender: FDA-Public Use
  Company Number: FR-GENZYME-CLOF-1002041

PATIENT
  Sex: Male
  Weight: 66 kg

DRUGS (6)
  1. VFEND [Concomitant]
     Indication: PRODUCT USED FOR UNKNOWN INDICATION
     Dosage: UNK
     Route: 065
  2. FILGRASTIM [Suspect]
     Indication: ACUTE MYELOID LEUKAEMIA
     Dosage: 960 MCG, DAY 1-6
     Route: 042
     Dates: start: 20111121, end: 20111126
  3. DAUNORUBICIN HCL [Suspect]
     Indication: ACUTE MYELOID LEUKAEMIA
     Dosage: UNK
     Route: 065
  4. CYTARABINE [Suspect]
     Indication: ACUTE MYELOID LEUKAEMIA
     Dosage: 900 MG; DAY 1-5
     Route: 042
     Dates: start: 20111121, end: 20111125
  5. IDARUBICIN HCL [Suspect]
     Indication: ACUTE MYELOID LEUKAEMIA
     Dosage: UNK
     Route: 065
  6. EVOLTRA [Suspect]
     Indication: ACUTE MYELOID LEUKAEMIA
     Dosage: 57 MG, DAY 2-6
     Route: 042
     Dates: start: 20111122, end: 20111126

REACTIONS (1)
  - POLYNEUROPATHY [None]
